FAERS Safety Report 7013419-X (Version None)
Quarter: 2010Q3

REPORT INFORMATION
  Report Type: 
  Country: None (occurrence: None)
  Receive Date: 20100924
  Receipt Date: 20100922
  Transmission Date: 20110219
  Serious: Yes (Hospitalization)
  Sender: FDA-Public Use
  Company Number: NL-BRISTOL-MYERS SQUIBB COMPANY-15299043

PATIENT
  Age: 70 Year
  Sex: Male

DRUGS (4)
  1. ABATACEPT [Suspect]
     Indication: RHEUMATOID ARTHRITIS
     Dosage: 1 DF:125 UNIT NOT SPECIFIED
     Route: 058
     Dates: start: 20090506
  2. METHOTREXATE [Suspect]
     Dates: start: 20050503
  3. VITAMIN B-12 [Concomitant]
     Dosage: INJ
     Dates: start: 19990101
  4. CARDIOX [Concomitant]
     Dates: start: 20050504

REACTIONS (1)
  - CHOLECYSTITIS [None]
